FAERS Safety Report 19799077 (Version 1)
Quarter: 2021Q3

REPORT INFORMATION
  Report Type: Spontaneous
  Country: AU (occurrence: AU)
  Receive Date: 20210907
  Receipt Date: 20210907
  Transmission Date: 20211014
  Serious: Yes (Other)
  Sender: FDA-Public Use
  Company Number: AU-TASMAN PHARMA, INC.-2021TSM00153

PATIENT
  Sex: Male

DRUGS (6)
  1. CLOZAPINE. [Suspect]
     Active Substance: CLOZAPINE
     Dosage: 475 MG
     Dates: start: 20210602, end: 20210608
  2. CLOZAPINE. [Suspect]
     Active Substance: CLOZAPINE
     Dosage: 475 MG
     Dates: start: 20210526, end: 20210601
  3. CLOZAPINE. [Suspect]
     Active Substance: CLOZAPINE
     Dosage: 525 MG
     Dates: start: 20210609, end: 20210713
  4. CLOZAPINE. [Suspect]
     Active Substance: CLOZAPINE
     Dosage: 525 MG
     Dates: start: 20210713, end: 20210720
  5. CLOZAPINE. [Suspect]
     Active Substance: CLOZAPINE
     Dosage: 525 MG
     Dates: start: 20210714, end: 20210714
  6. CLOZAPINE. [Suspect]
     Active Substance: CLOZAPINE
     Dosage: 400 MG
     Dates: start: 20210721

REACTIONS (1)
  - Diastolic dysfunction [Unknown]

NARRATIVE: CASE EVENT DATE: 20210805
